FAERS Safety Report 8859384 (Version 1)
Quarter: 2012Q4

REPORT INFORMATION
  Report Type: Spontaneous
  Country: DE (occurrence: None)
  Receive Date: 20121022
  Receipt Date: 20121022
  Transmission Date: 20130627
  Serious: Yes (Other)
  Sender: FDA-Public Use
  Company Number: 7167106

PATIENT
  Age: 54 Year
  Sex: Male

DRUGS (4)
  1. NOVOTHYRAL [Suspect]
     Indication: THYROIDECTOMY PARTIAL
     Route: 048
     Dates: end: 201207
  2. NOVOTHYRAL [Suspect]
     Indication: THYROIDECTOMY PARTIAL
     Route: 048
     Dates: end: 201207
  3. EUTHYROX [Suspect]
     Indication: DRUG USE FOR UNKNOWN INDICATION
     Route: 048
     Dates: end: 20121005
  4. CONTRAST MEDIUM [Suspect]
     Indication: DRUG USE FOR UNKNOWN INDICATION
     Dates: start: 20120713, end: 20120713

REACTIONS (3)
  - Nephrolithiasis [None]
  - Renal colic [None]
  - Arrhythmia [None]
